FAERS Safety Report 21230237 (Version 2)
Quarter: 2022Q3

REPORT INFORMATION
  Report Type: Spontaneous
  Country: CZ (occurrence: CZ)
  Receive Date: 20220818
  Receipt Date: 20220908
  Transmission Date: 20221027
  Serious: Yes (Other)
  Sender: FDA-Public Use
  Company Number: CZ-GILEAD-2022-0593423

PATIENT
  Sex: Female

DRUGS (7)
  1. VEKLURY [Suspect]
     Active Substance: REMDESIVIR
     Indication: COVID-19
     Dosage: UNK
     Route: 065
     Dates: start: 202204
  2. VEKLURY [Suspect]
     Active Substance: REMDESIVIR
     Dosage: UNK
     Route: 065
     Dates: start: 20220526
  3. VEKLURY [Suspect]
     Active Substance: REMDESIVIR
     Dosage: UNK
     Route: 065
     Dates: start: 20220630
  4. VEKLURY [Suspect]
     Active Substance: REMDESIVIR
     Dosage: UNK
     Route: 065
     Dates: start: 20220802
  5. LAGEVRIO [Concomitant]
     Active Substance: MOLNUPIRAVIR
     Indication: COVID-19
  6. COVID-19 CONVALESCENT PLASMA [Concomitant]
     Active Substance: COVID-19 CONVALESCENT PLASMA
  7. EVUSHELD [Concomitant]
     Active Substance: CILGAVIMAB\TIXAGEVIMAB

REACTIONS (5)
  - Pneumonia [Unknown]
  - COVID-19 pneumonia [Unknown]
  - SARS-CoV-2 test [Unknown]
  - Off label use [Not Recovered/Not Resolved]
  - Drug ineffective [Unknown]
